FAERS Safety Report 24593186 (Version 1)
Quarter: 2024Q4

REPORT INFORMATION
  Report Type: Spontaneous
  Country: US (occurrence: None)
  Receive Date: 20241107
  Receipt Date: 20241107
  Transmission Date: 20250114
  Serious: No
  Sender: Public
  Company Number: None

PATIENT
  Age: 59 Year
  Sex: Male

DRUGS (1)
  1. LOSARTAN POTASSIUM [Suspect]
     Active Substance: LOSARTAN POTASSIUM
     Indication: Hypertension

REACTIONS (4)
  - Hypertension [None]
  - Overdose [None]
  - Blood lactic acid increased [None]
  - Serotonin syndrome [None]

NARRATIVE: CASE EVENT DATE: 20240808
